FAERS Safety Report 6983524-2 (Version None)
Quarter: 2010Q3

REPORT INFORMATION
  Report Type: 
  Country: None (occurrence: None)
  Receive Date: 20100914
  Receipt Date: 20080729
  Transmission Date: 20110219
  Serious: No
  Sender: FDA-Public Use
  Company Number: US-WYE-H05279708

PATIENT
  Age: 82 Year
  Sex: Female

DRUGS (1)
  1. TYGACIL [Suspect]
     Indication: SKIN INFECTION
     Dosage: UNKNOWN
     Route: 042

REACTIONS (1)
  - DEAFNESS [None]
